FAERS Safety Report 16629641 (Version 1)
Quarter: 2019Q3

REPORT INFORMATION
  Report Type: Report from Study
  Country: JP (occurrence: JP)
  Receive Date: 20190725
  Receipt Date: 20190725
  Transmission Date: 20191004
  Serious: Yes (Other)
  Sender: FDA-Public Use
  Company Number: JP-VIIV HEALTHCARE LIMITED-JP2018JPN152865

PATIENT
  Age: 32 Year
  Sex: Male

DRUGS (6)
  1. DESCOVY [Suspect]
     Active Substance: EMTRICITABINE\TENOFOVIR ALAFENAMIDE FUMARATE
     Indication: HIV INFECTION
     Dosage: 1 DF, 1D
     Route: 048
     Dates: start: 20170619
  2. ALLEGRA [Concomitant]
     Active Substance: FEXOFENADINE HYDROCHLORIDE
     Dosage: UNK
     Dates: start: 20190207, end: 201904
  3. PATANOL OPHTHALMIC [Concomitant]
     Dosage: UNK
     Dates: start: 20180215, end: 201803
  4. ALLERMIST [Concomitant]
     Active Substance: FLUTICASONE FUROATE
     Dosage: UNK
     Dates: start: 20180215, end: 201803
  5. DOLUTEGRAVIR [Suspect]
     Active Substance: DOLUTEGRAVIR
     Indication: HIV INFECTION
     Dosage: 50 MG, 1D
     Route: 048
     Dates: start: 20170619
  6. ALLEGRA [Concomitant]
     Active Substance: FEXOFENADINE HYDROCHLORIDE
     Indication: SEASONAL ALLERGY
     Dosage: UNK
     Dates: start: 20180215, end: 201803

REACTIONS (4)
  - Pharyngitis bacterial [Recovering/Resolving]
  - Beta 2 microglobulin urine increased [Not Recovered/Not Resolved]
  - Blood creatinine increased [Not Recovered/Not Resolved]
  - Nausea [Recovering/Resolving]

NARRATIVE: CASE EVENT DATE: 20170619
